FAERS Safety Report 24778025 (Version 1)
Quarter: 2024Q4

REPORT INFORMATION
  Report Type: Spontaneous
  Country: US (occurrence: None)
  Receive Date: 20241225
  Receipt Date: 20241225
  Transmission Date: 20250115
  Serious: Yes (Disabling)
  Sender: Public
  Company Number: None

PATIENT
  Age: 77 Year
  Sex: Female
  Weight: 111.15 kg

DRUGS (12)
  1. JARDIANCE [Suspect]
     Active Substance: EMPAGLIFLOZIN
     Indication: Type 2 diabetes mellitus
     Route: 048
     Dates: start: 20241030, end: 20241115
  2. JARDIANCE [Suspect]
     Active Substance: EMPAGLIFLOZIN
     Indication: Chronic kidney disease
  3. Glipazide [Concomitant]
  4. PRADAXA [Concomitant]
     Active Substance: DABIGATRAN ETEXILATE MESYLATE
  5. METOPROLOL TARTRATE [Concomitant]
     Active Substance: METOPROLOL TARTRATE
  6. ATORVASTATIN [Concomitant]
     Active Substance: ATORVASTATIN
  7. Levothroid/Synthroid [Concomitant]
  8. VITAMIN D3 [Concomitant]
     Active Substance: CHOLECALCIFEROL
  9. CALCIUM [Concomitant]
     Active Substance: CALCIUM
  10. NIACINAMIDE [Concomitant]
     Active Substance: NIACINAMIDE
  11. C [Concomitant]
  12. Cinamon [Concomitant]

REACTIONS (5)
  - Dizziness [None]
  - Gait disturbance [None]
  - Therapy interrupted [None]
  - Drug rechallenge positive [None]
  - Adverse drug reaction [None]

NARRATIVE: CASE EVENT DATE: 20241115
